FAERS Safety Report 8447278 (Version 6)
Quarter: 2013Q1

REPORT INFORMATION
  Report Type: Spontaneous
  Country: US (occurrence: US)
  Receive Date: 20120301
  Receipt Date: 20130319
  Transmission Date: 20140127
  Serious: Yes (Hospitalization, Disabling, Other)
  Sender: FDA-Public Use
  Company Number: US-009507513-2011SP048235

PATIENT
  Sex: Female
  Weight: 92.99 kg

DRUGS (5)
  1. NUVARING [Suspect]
     Indication: CONTRACEPTION
     Dosage: UNK
     Dates: start: 20090511, end: 20091130
  2. HYDROCHLOROTHIAZIDE [Concomitant]
     Dosage: 25 MG, QD
     Route: 048
  3. K-TAB [Concomitant]
     Dosage: 10 MEQ, QD
     Route: 048
  4. MOTRIN [Concomitant]
     Dosage: 800 MG, BID
     Route: 048
  5. NASACORT AQ [Concomitant]
     Dosage: 1 PUFF EACH NOSTRIL
     Route: 055

REACTIONS (13)
  - Lobar pneumonia [Recovering/Resolving]
  - Pulmonary embolism [Unknown]
  - Hypokalaemia [Recovered/Resolved]
  - Anaemia [Unknown]
  - Muscle spasms [Unknown]
  - Thrombosis [Unknown]
  - Device expulsion [Unknown]
  - Hypercoagulation [Unknown]
  - Pregnancy [Unknown]
  - Back pain [Unknown]
  - Device expulsion [Recovered/Resolved]
  - Maternal exposure before pregnancy [Unknown]
  - Abortion spontaneous [Unknown]
